FAERS Safety Report 10218411 (Version 1)
Quarter: 2014Q2

REPORT INFORMATION
  Report Type: Spontaneous
  Country: FR (occurrence: FR)
  Receive Date: 20140605
  Receipt Date: 20140605
  Transmission Date: 20141212
  Serious: Yes (Other)
  Sender: FDA-Public Use
  Company Number: FR-JNJFOC-20140515842

PATIENT
  Age: 15 Year
  Sex: Female
  Weight: 48 kg

DRUGS (3)
  1. RISPERDAL [Suspect]
     Indication: ABNORMAL BEHAVIOUR
     Route: 048
     Dates: start: 201308, end: 201405
  2. DEPAKOTE [Suspect]
     Indication: ABNORMAL BEHAVIOUR
     Route: 048
     Dates: start: 201308, end: 201405
  3. TERCIAN [Suspect]
     Indication: ABNORMAL BEHAVIOUR
     Route: 048
     Dates: start: 201308, end: 201405

REACTIONS (5)
  - Weight increased [Not Recovered/Not Resolved]
  - Hypercholesterolaemia [Unknown]
  - Thyroid disorder [Unknown]
  - Binge eating [Unknown]
  - Activities of daily living impaired [Unknown]
